FAERS Safety Report 25469944 (Version 1)
Quarter: 2025Q2

REPORT INFORMATION
  Report Type: Spontaneous
  Country: JP (occurrence: JP)
  Receive Date: 20250623
  Receipt Date: 20250623
  Transmission Date: 20250716
  Serious: Yes (Death)
  Sender: ROCHE
  Company Number: JP-CHUGAI-2025020331

PATIENT
  Age: 91 Year
  Sex: Male

DRUGS (1)
  1. GAZYVA [Suspect]
     Active Substance: OBINUTUZUMAB
     Indication: Follicular lymphoma
     Route: 042
     Dates: start: 20241125

REACTIONS (1)
  - Marasmus [Fatal]
